FAERS Safety Report 6255545-9 (Version None)
Quarter: 2009Q2

REPORT INFORMATION
  Report Type: 
  Country: None (occurrence: None)
  Receive Date: 20090630
  Receipt Date: 20090617
  Transmission Date: 20091009
  Serious: No
  Sender: FDA-Public Use
  Company Number: 2009-197143-NL

PATIENT
  Age: 28 Year
  Sex: Female

DRUGS (1)
  1. ETONOGESTREL [Suspect]
     Dosage: DF
     Dates: start: 20030101

REACTIONS (2)
  - COMPLICATION OF DEVICE REMOVAL [None]
  - ULNAR NERVE INJURY [None]
